FAERS Safety Report 9255451 (Version 1)
Quarter: 2013Q2

REPORT INFORMATION
  Report Type: Spontaneous
  Country: US (occurrence: None)
  Receive Date: 20130423
  Receipt Date: 20130423
  Transmission Date: 20140414
  Serious: Yes (Other)
  Sender: FDA-Public Use
  Company Number: None

PATIENT
  Age: 54 Year
  Sex: Female
  Weight: 81.65 kg

DRUGS (2)
  1. ALPRAZOLAM [Suspect]
     Indication: NEUROPATHY PERIPHERAL
     Dosage: 1  DAILY  PO
     Route: 048
     Dates: start: 20130420, end: 20130422
  2. ALPRAZOLAM [Suspect]
     Indication: INSOMNIA
     Dosage: 1  DAILY  PO
     Route: 048
     Dates: start: 20130420, end: 20130422

REACTIONS (1)
  - Drug ineffective [None]
